FAERS Safety Report 5051990-8 (Version None)
Quarter: 2006Q3

REPORT INFORMATION
  Report Type: 
  Country: None (occurrence: None)
  Receive Date: 20060711
  Receipt Date: 20060628
  Transmission Date: 20061208
  Serious: Yes (Hospitalization)
  Sender: FDA-Public Use
  Company Number: 146375USA

PATIENT
  Age: 31 Year
  Sex: Male

DRUGS (1)
  1. GLIPIZIDE [Suspect]
     Indication: DIABETES MELLITUS NON-INSULIN-DEPENDENT
     Dosage: 10 MILLIGRAM QD ORAL
     Route: 048

REACTIONS (7)
  - BLOOD GLUCOSE INCREASED [None]
  - ERYTHEMA [None]
  - GLYCOSYLATED HAEMOGLOBIN INCREASED [None]
  - LIP HAEMORRHAGE [None]
  - PAIN OF SKIN [None]
  - SCAB [None]
  - STEVENS-JOHNSON SYNDROME [None]
